FAERS Safety Report 7114921-2 (Version None)
Quarter: 2010Q4

REPORT INFORMATION
  Report Type: 
  Country: None (occurrence: None)
  Receive Date: 20101122
  Receipt Date: 20101112
  Transmission Date: 20110411
  Serious: No
  Sender: FDA-Public Use
  Company Number: US-BIOGENIDEC-2010BI040204

PATIENT
  Age: 52 Year
  Sex: Female

DRUGS (1)
  1. TYSABRI [Suspect]
     Indication: MULTIPLE SCLEROSIS
     Route: 042
     Dates: start: 20070314

REACTIONS (7)
  - ALOPECIA [None]
  - DRUG TOXICITY [None]
  - FATIGUE [None]
  - SLUGGISHNESS [None]
  - THYROID DISORDER [None]
  - WEIGHT DECREASED [None]
  - WEIGHT INCREASED [None]
